FAERS Safety Report 14308504 (Version 1)
Quarter: 2017Q4

REPORT INFORMATION
  Report Type: Spontaneous
  Country: RO (occurrence: RO)
  Receive Date: 20171220
  Receipt Date: 20171220
  Transmission Date: 20180321
  Serious: Yes (Life-Threatening, Other)
  Sender: FDA-Public Use
  Company Number: RO-ABBVIE-17K-135-2200014-00

PATIENT
  Age: 66 Year
  Sex: Male

DRUGS (1)
  1. HUMIRA [Suspect]
     Active Substance: ADALIMUMAB
     Indication: CROHN^S DISEASE
     Route: 058
     Dates: start: 20151211, end: 20171220

REACTIONS (2)
  - Haemoptysis [Unknown]
  - Bronchial neoplasm [Unknown]

NARRATIVE: CASE EVENT DATE: 2017
